FAERS Safety Report 7246750-3 (Version None)
Quarter: 2011Q1

REPORT INFORMATION
  Report Type: 
  Country: None (occurrence: None)
  Receive Date: 20110127
  Receipt Date: 20110118
  Transmission Date: 20110831
  Serious: Yes (Hospitalization)
  Sender: FDA-Public Use
  Company Number: US-JNJFOC-20101205786

PATIENT
  Sex: Male
  Weight: 107.55 kg

DRUGS (2)
  1. LEVAQUIN [Suspect]
     Route: 048
  2. LEVAQUIN [Suspect]
     Indication: PNEUMONIA
     Route: 042

REACTIONS (7)
  - PSYCHOTIC DISORDER [None]
  - ANGER [None]
  - CONFUSIONAL STATE [None]
  - INCOHERENT [None]
  - DYSPHEMIA [None]
  - MENTAL STATUS CHANGES [None]
  - AGITATION [None]
